FAERS Safety Report 9152313 (Version 1)
Quarter: 2013Q1

REPORT INFORMATION
  Report Type: Spontaneous
  Country: US (occurrence: US)
  Receive Date: 20130308
  Receipt Date: 20130308
  Transmission Date: 20140127
  Serious: No
  Sender: FDA-Public Use
  Company Number: US-ASTRAZENECA-2013SE11271

PATIENT
  Sex: Male

DRUGS (8)
  1. NEXIUM [Suspect]
     Indication: GASTRIC MUCOSAL LESION
     Route: 048
  2. NEXIUM [Suspect]
     Indication: GASTRIC MUCOSAL LESION
     Route: 048
     Dates: start: 2005
  3. CRESTOR [Suspect]
     Indication: THROMBOSIS PROPHYLAXIS
     Route: 048
     Dates: start: 2007, end: 2011
  4. LIPITOR [Suspect]
     Route: 065
  5. AMITRIPTYLINE [Concomitant]
     Indication: INSOMNIA
  6. CARISOPRODOL [Concomitant]
     Indication: INSOMNIA
  7. CEPACOL SPRAY [Concomitant]
     Indication: DYSPNOEA
  8. XOPENEX INHALER [Concomitant]
     Indication: DYSPNOEA

REACTIONS (4)
  - Cough [Unknown]
  - Cataract [Unknown]
  - Diabetes mellitus [Unknown]
  - Off label use [Unknown]
